FAERS Safety Report 8388708-7 (Version None)
Quarter: 2012Q2

REPORT INFORMATION
  Report Type: 
  Country: None (occurrence: None)
  Receive Date: 20120527
  Receipt Date: 20120514
  Transmission Date: 20120825
  Serious: Yes (Other)
  Sender: FDA-Public Use
  Company Number: KR-VALEANT-2012VX002251

PATIENT

DRUGS (4)
  1. SODIUM CHLORIDE [Concomitant]
     Route: 065
  2. FLUOROURACIL [Suspect]
     Indication: HEPATIC NEOPLASM MALIGNANT
     Route: 013
  3. CISPLATIN [Suspect]
     Indication: HEPATIC NEOPLASM MALIGNANT
     Route: 013
  4. ONDANSETRON HYDROCHLORIDE [Concomitant]
     Route: 065

REACTIONS (1)
  - ASPARTATE AMINOTRANSFERASE INCREASED [None]
